FAERS Safety Report 4593960-X (Version None)
Quarter: 2005Q1

REPORT INFORMATION
  Report Type: 
  Country: None (occurrence: None)
  Receive Date: 20050223
  Receipt Date: 20040916
  Transmission Date: 20050727
  Serious: Yes (Other)
  Sender: FDA-Public Use
  Company Number: 200510146BBE

PATIENT
  Sex: Male

DRUGS (3)
  1. KONYNE [Suspect]
     Indication: FACTOR VIII DEFICIENCY
     Dates: start: 19810101, end: 19860101
  2. KONYNE [Suspect]
     Indication: FACTOR VIII DEFICIENCY
     Dates: start: 19860101, end: 19900101
  3. PROPLEX [Suspect]
     Dates: start: 19780101, end: 19810101

REACTIONS (1)
  - HEPATITIS C VIRUS [None]
